FAERS Safety Report 18601686 (Version 1)
Quarter: 2020Q4

REPORT INFORMATION
  Report Type: Spontaneous
  Country: JP (occurrence: JP)
  Receive Date: 20201210
  Receipt Date: 20201210
  Transmission Date: 20210114
  Serious: Yes (Other)
  Sender: FDA-Public Use
  Company Number: JP-MYLANLABS-2020M1100363

PATIENT
  Sex: Female

DRUGS (1)
  1. TACROLIMUS CAPSULES 0.5MG ?PFIZER? [Suspect]
     Active Substance: TACROLIMUS
     Indication: HABITUAL ABORTION
     Dosage: 1 MILLIGRAM, QD
     Route: 048

REACTIONS (3)
  - Cervical incompetence [Unknown]
  - Off label use [Unknown]
  - Maternal exposure during pregnancy [Unknown]
